FAERS Safety Report 14739082 (Version 1)
Quarter: 2018Q2

REPORT INFORMATION
  Report Type: Report from Study
  Country: US (occurrence: US)
  Receive Date: 20180410
  Receipt Date: 20180410
  Transmission Date: 20180711
  Serious: Yes (Hospitalization, Other)
  Sender: FDA-Public Use
  Company Number: US-BRISTOL-MYERS SQUIBB COMPANY-BMS-2018-030328

PATIENT
  Age: 69 Year
  Sex: Male
  Weight: 68.4 kg

DRUGS (2)
  1. NIVOLUMAB [Suspect]
     Active Substance: NIVOLUMAB
     Indication: SMALL CELL LUNG CANCER
     Dosage: 240 MG, Q2WK
     Route: 042
     Dates: start: 20171221, end: 20180315
  2. 177LU-DOTA0-TYR3-OCTREOTATE [Suspect]
     Active Substance: LUTETIUM OXODOTREOTIDE LU-177
     Indication: SMALL CELL LUNG CANCER
     Dosage: 3.7 GBQ, Q8WK
     Route: 042
     Dates: start: 20180104, end: 20180301

REACTIONS (8)
  - Left ventricular dysfunction [None]
  - Syncope [Unknown]
  - Arrhythmia [Recovering/Resolving]
  - Productive cough [Unknown]
  - Head injury [None]
  - Small cell lung cancer [None]
  - Dyspnoea [Recovering/Resolving]
  - Malignant neoplasm progression [Unknown]

NARRATIVE: CASE EVENT DATE: 20180329
